FAERS Safety Report 6679438-8 (Version None)
Quarter: 2010Q2

REPORT INFORMATION
  Report Type: 
  Country: None (occurrence: None)
  Receive Date: 20100413
  Receipt Date: 20100402
  Transmission Date: 20101027
  Serious: Yes (Other)
  Sender: FDA-Public Use
  Company Number: US-ROCHE-696020

PATIENT
  Sex: Female

DRUGS (5)
  1. BEVACIZUMAB [Suspect]
     Indication: BREAST CANCER
     Dosage: OVER 30-90 MIN ON DAY 1 CONCURRENT HORMONAL THERAPY, START DATE OF AE COURSE: 27 JANUARY 2010,
     Route: 042
     Dates: start: 20090805
  2. CYCLOPHOSPHAMIDE [Suspect]
     Indication: BREAST CANCER
     Dosage: ROUTE FROM PROTOCOL.
     Route: 042
     Dates: start: 20090805
  3. DOXORUBICIN HCL [Suspect]
     Indication: BREAST CANCER
     Dosage: ROUTE FROM PROTOCOL.
     Route: 042
     Dates: start: 20090805
  4. PACLITAXEL [Suspect]
     Indication: BREAST CANCER
     Dosage: ROUTE REPORTED FROM PROTOCOL.
     Route: 042
     Dates: start: 20090805
  5. RISEDRONATE SODIUM [Suspect]
     Indication: OSTEOPENIA
     Route: 048
     Dates: start: 20080418

REACTIONS (1)
  - OSTEONECROSIS [None]
